FAERS Safety Report 7429972-8 (Version None)
Quarter: 2011Q2

REPORT INFORMATION
  Report Type: 
  Country: None (occurrence: None)
  Receive Date: 20110421
  Receipt Date: 20110414
  Transmission Date: 20111010
  Serious: Yes (Hospitalization)
  Sender: FDA-Public Use
  Company Number: JP-PFIZER INC-2011072605

PATIENT
  Age: 35 Year
  Sex: Female

DRUGS (3)
  1. GASTER [Suspect]
     Dosage: 20 MG DAILY
     Route: 042
     Dates: start: 20110319, end: 20110322
  2. CEFAMEZIN [Suspect]
     Dosage: 1 G DAILY
     Route: 042
     Dates: start: 20110319, end: 20110322
  3. NORVASC [Suspect]
     Dosage: 5 MG DAILY
     Route: 048
     Dates: start: 20110319, end: 20110322

REACTIONS (1)
  - HEPATIC FUNCTION ABNORMAL [None]
